FAERS Safety Report 7729736-1 (Version None)
Quarter: 2011Q3

REPORT INFORMATION
  Report Type: 
  Country: None (occurrence: None)
  Receive Date: 20110817
  Receipt Date: 20110407
  Transmission Date: 20111222
  Serious: Yes (Other)
  Sender: FDA-Public Use
  Company Number: 20109164

PATIENT
  Sex: Female

DRUGS (3)
  1. BUPIVACAINE HCL [Concomitant]
  2. MORPHINE [Concomitant]
  3. LIORESAL [Suspect]
     Indication: MUSCLE SPASTICITY
     Dosage: DAILY, INTRATHECAL
     Route: 037

REACTIONS (4)
  - DRUG WITHDRAWAL SYNDROME [None]
  - BLOOD PRESSURE INCREASED [None]
  - FATIGUE [None]
  - PAIN [None]
